FAERS Safety Report 24679787 (Version 2)
Quarter: 2024Q4

REPORT INFORMATION
  Report Type: Spontaneous
  Country: US (occurrence: US)
  Receive Date: 20241129
  Receipt Date: 20241220
  Transmission Date: 20250114
  Serious: No
  Sender: ALEXION PHARMACEUTICALS
  Company Number: US-AstraZeneca-CH-00756623A

PATIENT

DRUGS (4)
  1. FASENRA [Suspect]
     Active Substance: BENRALIZUMAB
     Dosage: UNK
     Route: 065
  2. FASENRA [Suspect]
     Active Substance: BENRALIZUMAB
     Dosage: UNK
     Route: 065
  3. FASENRA [Suspect]
     Active Substance: BENRALIZUMAB
     Dosage: UNK
     Route: 065
  4. FASENRA [Suspect]
     Active Substance: BENRALIZUMAB
     Dosage: UNK
     Route: 065

REACTIONS (2)
  - Analgesic therapy [Unknown]
  - Muscle relaxant therapy [Unknown]
